FAERS Safety Report 5308960-1 (Version None)
Quarter: 2007Q2

REPORT INFORMATION
  Report Type: 
  Country: None (occurrence: None)
  Receive Date: 20070426
  Receipt Date: 20070423
  Transmission Date: 20071010
  Serious: Yes (Hospitalization)
  Sender: FDA-Public Use
  Company Number: US-BOEHRINGER INGELHEIM PHARMACEUTICALS, INC.-2007-BP-05598PF

PATIENT
  Sex: Female

DRUGS (4)
  1. SPIRIVA [Suspect]
  2. ADVAIR DISKUS 100/50 [Suspect]
  3. PREDNISONE TAB [Suspect]
  4. CHANTIX [Suspect]

REACTIONS (4)
  - CARDIAC FAILURE CONGESTIVE [None]
  - CONVULSION [None]
  - MYOCARDIAL INFARCTION [None]
  - THROMBOSIS [None]
